FAERS Safety Report 5186330-7 (Version None)
Quarter: 2006Q4

REPORT INFORMATION
  Report Type: 
  Country: None (occurrence: None)
  Receive Date: 20061213
  Receipt Date: 20061127
  Transmission Date: 20070319
  Serious: Yes (Other)
  Sender: FDA-Public Use
  Company Number: TCI2006A03679

PATIENT
  Age: 65 Year
  Sex: Male

DRUGS (5)
  1. ACTOS [Suspect]
     Indication: DIABETES MELLITUS
     Dosage: 15 MG (15 MG, 1- IN 1 D) PER ORAL
     Route: 048
     Dates: start: 20060818, end: 20060821
  2. AMARYL [Suspect]
     Indication: DIABETES MELLITUS
     Dosage: 1+ 2 MG (1 MG, 1 IN 1 D) PER ORAL - SEE IMAGE
     Route: 048
     Dates: start: 20060817, end: 20060817
  3. NORVASC [Concomitant]
  4. DOXAZOSIN MESYLATE [Concomitant]
  5. ROXATIDINE ACETATE HCL [Concomitant]

REACTIONS (7)
  - COUGH [None]
  - DRUG HYPERSENSITIVITY [None]
  - ERYTHEMA [None]
  - MALAISE [None]
  - ORAL DISCOMFORT [None]
  - RHABDOMYOLYSIS [None]
  - SWELLING FACE [None]
